FAERS Safety Report 14978277 (Version 1)
Quarter: 2018Q2

REPORT INFORMATION
  Report Type: Spontaneous
  Country: IT (occurrence: IT)
  Receive Date: 20180606
  Receipt Date: 20180606
  Transmission Date: 20180711
  Serious: Yes (Hospitalization)
  Sender: FDA-Public Use
  Company Number: IT-ACCORD-067825

PATIENT
  Age: 88 Year
  Sex: Female

DRUGS (10)
  1. LUVION (CANRENOIC ACID) [Suspect]
     Active Substance: CANRENOIC ACID
     Indication: PRODUCT USED FOR UNKNOWN INDICATION
     Route: 048
     Dates: start: 20110423, end: 20110523
  2. SERTRALINE [Suspect]
     Active Substance: SERTRALINE HYDROCHLORIDE
     Indication: PRODUCT USED FOR UNKNOWN INDICATION
     Dates: start: 20110423, end: 20110523
  3. CLEXANE [Concomitant]
     Active Substance: ENOXAPARIN SODIUM
  4. FUROSEMIDE. [Suspect]
     Active Substance: FUROSEMIDE
     Indication: PRODUCT USED FOR UNKNOWN INDICATION
     Route: 048
     Dates: start: 20110423, end: 20110523
  5. DERMATRANS (NITROGLYCERIN) [Suspect]
     Active Substance: NITROGLYCERIN
     Indication: PRODUCT USED FOR UNKNOWN INDICATION
     Route: 062
     Dates: start: 20110423, end: 20110523
  6. DILATREND [Concomitant]
     Active Substance: CARVEDILOL
  7. ZYLORIC [Concomitant]
     Active Substance: ALLOPURINOL
  8. SPIRIVA [Concomitant]
     Active Substance: TIOTROPIUM BROMIDE MONOHYDRATE
  9. GLYCERYL TRINITRATE [Suspect]
     Active Substance: NITROGLYCERIN
     Indication: PRODUCT USED FOR UNKNOWN INDICATION
  10. CACIT [Concomitant]
     Active Substance: CALCIUM\VITAMIN D

REACTIONS (6)
  - Epistaxis [Unknown]
  - Dehydration [Unknown]
  - Decreased appetite [None]
  - Hyperkalaemia [Unknown]
  - Lethargy [None]
  - Oliguria [None]

NARRATIVE: CASE EVENT DATE: 20110523
